FAERS Safety Report 10239125 (Version 1)
Quarter: 2014Q2

REPORT INFORMATION
  Report Type: Spontaneous
  Country: US (occurrence: US)
  Receive Date: 20140616
  Receipt Date: 20140616
  Transmission Date: 20141212
  Serious: No
  Sender: FDA-Public Use
  Company Number: US-ENDO PHARMACEUTICALS INC.-OPIR20140002

PATIENT
  Sex: Female

DRUGS (3)
  1. OPANA [Suspect]
     Indication: PAIN
     Route: 048
  2. OPANA [Suspect]
     Dosage: UNKNOWN
     Route: 048
  3. OXYMORPHONE ER [Concomitant]
     Indication: PAIN
     Dosage: UNKNOWN
     Route: 048
     Dates: end: 20140227

REACTIONS (2)
  - Drug dose omission [Not Recovered/Not Resolved]
  - Withdrawal syndrome [Not Recovered/Not Resolved]
